FAERS Safety Report 5313325-2 (Version None)
Quarter: 2007Q2

REPORT INFORMATION
  Report Type: 
  Country: None (occurrence: None)
  Receive Date: 20070501
  Receipt Date: 20070420
  Transmission Date: 20071010
  Serious: Yes (Other)
  Sender: FDA-Public Use
  Company Number: PHEH2007US05984

PATIENT
  Weight: 77.097 kg

DRUGS (7)
  1. DIOVAN [Suspect]
     Indication: HYPERTENSION
     Dosage: `
     Route: 048
     Dates: start: 20050101, end: 20070101
  2. PREVACID [Concomitant]
  3. FOLIC ACID [Concomitant]
  4. TICLID [Concomitant]
  5. TRANDATE [Concomitant]
     Dosage: 400 MG, BID
  6. TERAZOSIN HCL [Concomitant]
     Dosage: 2 MG; 2 CAPS IN THE AM 1 CAP IN THE PM
  7. NORVASC [Concomitant]
     Dosage: 10 MG, QD

REACTIONS (3)
  - ASTHMA [None]
  - COUGH [None]
  - OEDEMA PERIPHERAL [None]
